FAERS Safety Report 8443813-1 (Version None)
Quarter: 2012Q2

REPORT INFORMATION
  Report Type: 
  Country: None (occurrence: None)
  Receive Date: 20120323
  Receipt Date: 20110825
  Transmission Date: 20120825
  Serious: Yes (Hospitalization, Other)
  Sender: FDA-Public Use
  Company Number: 163-21880-11061637

PATIENT
  Age: 77 Year
  Sex: Female
  Weight: 61.2356 kg

DRUGS (8)
  1. MELPHALAN HYDROCHLORIDE [Concomitant]
  2. ALKERAN [Concomitant]
  3. PREDNISONE TAB [Concomitant]
  4. REVLIMID [Suspect]
     Indication: MULTIPLE MYELOMA
     Dosage: 10 MG, DAILY X 21 DAYS, PO
     Route: 048
     Dates: start: 20110414, end: 20110531
  5. SENOKOT [Concomitant]
  6. ASPIRIN [Concomitant]
  7. LEVOTHYROXINE SODIUM [Concomitant]
  8. RESTORIL [Concomitant]

REACTIONS (7)
  - MUSCLE SPASMS [None]
  - THROMBOCYTOPENIA [None]
  - EPISTAXIS [None]
  - DECREASED APPETITE [None]
  - FATIGUE [None]
  - NEUTROPENIA [None]
  - ANAEMIA [None]
